FAERS Safety Report 6699555-6 (Version None)
Quarter: 2010Q2

REPORT INFORMATION
  Report Type: 
  Country: None (occurrence: None)
  Receive Date: 20100427
  Receipt Date: 20100427
  Transmission Date: 20101027
  Serious: Yes (Other)
  Sender: FDA-Public Use
  Company Number: None

PATIENT

DRUGS (2)
  1. KEPPRA [Suspect]
     Indication: BRAIN NEOPLASM
     Dosage: 1,000MG
     Dates: start: 20100421, end: 20100422
  2. KEPPRA [Suspect]
     Indication: CONVULSION
     Dosage: 1,000MG
     Dates: start: 20100421, end: 20100422

REACTIONS (10)
  - DEJA VU [None]
  - DIARRHOEA [None]
  - DRUG INEFFECTIVE [None]
  - EUPHORIC MOOD [None]
  - HALLUCINATION [None]
  - NAUSEA [None]
  - PARTIAL SEIZURES [None]
  - PRODUCT PACKAGING ISSUE [None]
  - PRODUCT QUALITY ISSUE [None]
  - VOMITING [None]
